FAERS Safety Report 11587257 (Version 1)
Quarter: 2015Q3

REPORT INFORMATION
  Report Type: Spontaneous
  Country: US (occurrence: US)
  Receive Date: 20150916
  Receipt Date: 20150916
  Transmission Date: 20151125
  Serious: No
  Sender: FDA-Public Use
  Company Number: US-ELI_LILLY_AND_COMPANY-US200802000651

PATIENT

DRUGS (8)
  1. TRAZONE [Concomitant]
  2. VICODIN [Concomitant]
     Active Substance: ACETAMINOPHEN\HYDROCODONE BITARTRATE
  3. FORTEO [Suspect]
     Active Substance: TERIPARATIDE
     Dates: start: 20080128
  4. NEXIUM [Concomitant]
     Active Substance: ESOMEPRAZOLE MAGNESIUM
  5. PHENERGAN [Concomitant]
     Active Substance: PROMETHAZINE HYDROCHLORIDE
  6. EFFEXOR [Concomitant]
     Active Substance: VENLAFAXINE HYDROCHLORIDE
  7. FORTEO [Suspect]
     Active Substance: TERIPARATIDE
     Dosage: UNK D/F, UNK
  8. CLONAPIN [Concomitant]
     Active Substance: CLONAZEPAM

REACTIONS (3)
  - Balance disorder [Not Recovered/Not Resolved]
  - Fall [Unknown]
  - Contusion [Unknown]

NARRATIVE: CASE EVENT DATE: 20080128
